FAERS Safety Report 5962666-4 (Version None)
Quarter: 2008Q4

REPORT INFORMATION
  Report Type: 
  Country: None (occurrence: None)
  Receive Date: 20081124
  Receipt Date: 20081113
  Transmission Date: 20090506
  Serious: Yes (Other)
  Sender: FDA-Public Use
  Company Number: DE-RANBAXY-2008RR-19327

PATIENT
  Age: 58 Year
  Sex: Male

DRUGS (1)
  1. RAMIPRIL BASICS PLUS 5MG/25MG FILMTABLETTEN [Suspect]
     Route: 048

REACTIONS (2)
  - DRUG INEFFECTIVE [None]
  - HYPERTENSION [None]
